FAERS Safety Report 18952682 (Version 2)
Quarter: 2022Q1

REPORT INFORMATION
  Report Type: Other
  Country: SE (occurrence: SE)
  Receive Date: 20210301
  Receipt Date: 20220104
  Transmission Date: 20220423
  Serious: Yes (Hospitalization, Other)
  Sender: FDA-Public Use
  Company Number: SE-BIOCODEX SA-2021000065

PATIENT

DRUGS (17)
  1. DIACOMIT [Interacting]
     Active Substance: STIRIPENTOL
     Indication: Epilepsy
     Dosage: 250MG GIVEN THREE DOSES PER DAY (MIXED IN 5 ML OF WATER. GIVE 2.5 ML OF THIS SOLUTION MORNING AND NO
     Route: 048
     Dates: start: 20200130, end: 20200429
  2. DIACOMIT [Interacting]
     Active Substance: STIRIPENTOL
     Dosage: DECREASED TO 2.5 + 2.5+ 2.5ML FOR FIVE DAYS. THEN FURTHER REDUCTION TO 2 + 2 + 2.5ML WHICH THEN EQUA
     Route: 048
     Dates: start: 20200207
  3. DIACOMIT [Interacting]
     Active Substance: STIRIPENTOL
     Dosage: 2 ML+ 2 ML+ 2.5ML
     Route: 048
     Dates: start: 20200313
  4. DIACOMIT [Interacting]
     Active Substance: STIRIPENTOL
     Dosage: REDUCTION NOT PRECISED
     Route: 048
     Dates: start: 20200401, end: 20200429
  5. DIACOMIT [Interacting]
     Active Substance: STIRIPENTOL
     Dosage: 20MG/KG FOR 2 WEEKS, I.E. 125MG X 2 AND THEN 30 MG/KG, 125 + 250MGUNK
     Dates: start: 20200106
  6. VALPROIC ACID [Interacting]
     Active Substance: VALPROIC ACID
     Indication: Epilepsy
     Dosage: 100MG 4+5
     Route: 048
     Dates: start: 20191218
  7. VALPROIC ACID [Interacting]
     Active Substance: VALPROIC ACID
     Dosage: 100MG 4+4  CORRESPONDS TO 61.5MG/KG/DAY
     Route: 048
     Dates: start: 20200130
  8. VALPROIC ACID [Interacting]
     Active Substance: VALPROIC ACID
     Dosage: CORRESPONDS TO 54MG/KG/DAY
     Route: 048
     Dates: start: 20200221
  9. VALPROIC ACID [Interacting]
     Active Substance: VALPROIC ACID
     Dosage: 300MG+400MG
     Route: 048
     Dates: start: 20200313
  10. VALPROIC ACID [Interacting]
     Active Substance: VALPROIC ACID
     Dosage: 620 MICROMOL/L
     Route: 048
     Dates: start: 20200520
  11. CLOBAZAM [Interacting]
     Active Substance: CLOBAZAM
     Indication: Epilepsy
     Dosage: 10MG, HALF + HALF
     Route: 065
     Dates: start: 20191218
  12. CLOBAZAM [Interacting]
     Active Substance: CLOBAZAM
     Dosage: DECREASE BY HALF TABLET PER WEEK TO 0.25MG X 2
     Route: 065
     Dates: start: 20200103
  13. CLOBAZAM [Interacting]
     Active Substance: CLOBAZAM
     Dosage: INCREASE TO 5+0+ 2.5MG. INCREASE FROM APPROXIMATELY  0.38 TO 0.58 MG/KG/DAY.
     Route: 065
     Dates: start: 20200228
  14. CLOBAZAM [Interacting]
     Active Substance: CLOBAZAM
     Dosage: 10MG: 0.5+0.5
     Route: 065
     Dates: start: 20200313
  15. MIDAZOLAM HYDROCHLORIDE [Concomitant]
     Active Substance: MIDAZOLAM HYDROCHLORIDE
     Indication: Product used for unknown indication
     Route: 065
  16. TOPIRAMATE [Concomitant]
     Active Substance: TOPIRAMATE
     Indication: Product used for unknown indication
     Route: 065
     Dates: start: 20200401
  17. TOPIRAMATE [Concomitant]
     Active Substance: TOPIRAMATE
     Dosage: 11MICROMOL/L AT THE DOSE OF 5.3MG/KG PER DAY
     Route: 065
     Dates: start: 20200520

REACTIONS (2)
  - Hepatic enzyme abnormal [Recovered/Resolved]
  - Drug interaction [Recovered/Resolved]

NARRATIVE: CASE EVENT DATE: 20200129
